FAERS Safety Report 22623847 (Version 1)
Quarter: 2023Q2

REPORT INFORMATION
  Report Type: Spontaneous
  Country: RU (occurrence: RU)
  Receive Date: 20230621
  Receipt Date: 20230621
  Transmission Date: 20230721
  Serious: Yes (Death)
  Sender: FDA-Public Use
  Company Number: RU-JNJFOC-20230639459

PATIENT
  Age: 5 Decade
  Sex: Male
  Weight: 79 kg

DRUGS (4)
  1. SIRTURO [Suspect]
     Active Substance: BEDAQUILINE FUMARATE
     Indication: Tuberculosis
     Dosage: 0.2 UNSPECIFIED UNITS 3 TIMES A WEEK
     Route: 048
     Dates: start: 20230404, end: 20230523
  2. LEVOFLOXACIN [Suspect]
     Active Substance: LEVOFLOXACIN
     Indication: Tuberculosis
     Dosage: 1 UNSPECIFIED UNITS, DAILY
     Route: 065
     Dates: start: 20230404, end: 20230523
  3. LINEZOLID [Suspect]
     Active Substance: LINEZOLID
     Indication: Tuberculosis
     Dosage: 0.6 UNSPECIFIED UNITS, DAILY
     Route: 065
     Dates: start: 20230404, end: 20230523
  4. CLOFAZIMINE [Suspect]
     Active Substance: CLOFAZIMINE
     Indication: Tuberculosis
     Dosage: 0.1 UNSPECIFIED UNITS, DAILY
     Route: 065
     Dates: start: 20230404, end: 20230523

REACTIONS (1)
  - Bladder cancer [Fatal]
